FAERS Safety Report 18669925 (Version 1)
Quarter: 2020Q4

REPORT INFORMATION
  Report Type: Spontaneous
  Country: US (occurrence: US)
  Receive Date: 20201228
  Receipt Date: 20201228
  Transmission Date: 20210114
  Serious: Yes (Hospitalization)
  Sender: FDA-Public Use
  Company Number: None

PATIENT
  Age: 58 Year
  Sex: Female
  Weight: 85.7 kg

DRUGS (1)
  1. BAMLANIVIMAB. [Suspect]
     Active Substance: BAMLANIVIMAB
     Indication: COVID-19
     Dosage: ?          OTHER FREQUENCY:1 X ONLY;?
     Route: 041
     Dates: start: 20201223, end: 20201223

REACTIONS (14)
  - Sepsis [None]
  - Dyspnoea [None]
  - Pyrexia [None]
  - Cough [None]
  - Drug screen positive [None]
  - Chills [None]
  - Vomiting [None]
  - Aphasia [None]
  - Diarrhoea [None]
  - Thalamic infarction [None]
  - Oxygen saturation decreased [None]
  - Mental status changes [None]
  - Blood pressure decreased [None]
  - Brain oedema [None]

NARRATIVE: CASE EVENT DATE: 20201223
